FAERS Safety Report 7652995-0 (Version None)
Quarter: 2011Q3

REPORT INFORMATION
  Report Type: 
  Country: None (occurrence: None)
  Receive Date: 20110803
  Receipt Date: 20110722
  Transmission Date: 20111222
  Serious: Yes (Hospitalization)
  Sender: FDA-Public Use
  Company Number: JP-ROCHE-788492

PATIENT
  Sex: Female
  Weight: 63 kg

DRUGS (5)
  1. PREDNISOLONE [Concomitant]
     Dosage: NOTE: IT INCREASES AND DECREASES PROPERLY BY THE SYMPTOM.
     Route: 048
  2. COMELIAN [Concomitant]
     Route: 048
     Dates: start: 20070801
  3. PREDNISOLONE [Concomitant]
     Dosage: NOTE: IT INCREASES AND DECREASES PROPERLY BY THE SYMPTOM.
     Route: 048
     Dates: start: 20070626
  4. AVASTIN [Suspect]
     Indication: CHOROIDAL NEOVASCULARISATION
     Dosage: DOSAGE IS UNCERTAIN.
     Route: 031
     Dates: start: 20110114, end: 20110114
  5. BREDININ [Concomitant]
     Route: 048
     Dates: start: 20090520

REACTIONS (2)
  - NEPHROTIC SYNDROME [None]
  - DISEASE RECURRENCE [None]
